FAERS Safety Report 22036062 (Version 1)
Quarter: 2023Q1

REPORT INFORMATION
  Report Type: Spontaneous
  Country: US (occurrence: US)
  Receive Date: 20230224
  Receipt Date: 20230224
  Transmission Date: 20230417
  Serious: Yes (Other)
  Sender: FDA-Public Use
  Company Number: US-VER-202300028

PATIENT
  Age: 46 Year
  Sex: Female

DRUGS (3)
  1. TRELSTAR [Suspect]
     Active Substance: TRIPTORELIN PAMOATE
     Indication: Breast cancer metastatic
     Route: 065
     Dates: start: 2018
  2. IBRANCE [Suspect]
     Active Substance: PALBOCICLIB
     Indication: Breast cancer metastatic
     Dosage: FOR 3 WEEKS ON AND 1 WEEK OFF AT NIGHT.
     Route: 065
  3. EXEMESTANE [Suspect]
     Active Substance: EXEMESTANE
     Indication: Breast cancer metastatic
     Route: 065

REACTIONS (13)
  - Pigmentation disorder [Unknown]
  - Product intolerance [Unknown]
  - COVID-19 [Unknown]
  - Crying [Unknown]
  - Disability [Unknown]
  - Cancer in remission [Unknown]
  - Depression [Unknown]
  - Product dose omission issue [Unknown]
  - Nervous system disorder [Not Recovered/Not Resolved]
  - Off label use [Recovered/Resolved]
  - Pain [Unknown]
  - Gastrointestinal disorder [Unknown]
  - Suicidal behaviour [Unknown]

NARRATIVE: CASE EVENT DATE: 20180101
